FAERS Safety Report 18133292 (Version 3)
Quarter: 2020Q3

REPORT INFORMATION
  Report Type: Spontaneous
  Country: GB (occurrence: GB)
  Receive Date: 20200811
  Receipt Date: 20200829
  Transmission Date: 20201103
  Serious: Yes (Hospitalization, Other)
  Sender: FDA-Public Use
  Company Number: GB-AUROBINDO-AUR-APL-2020-038206

PATIENT
  Age: 47 Year
  Sex: Female
  Weight: 83 kg

DRUGS (6)
  1. CALCIUM CARBONATE. [Interacting]
     Active Substance: CALCIUM CARBONATE
     Dosage: 9 DOSAGE FORM, ONCE A DAY
     Route: 048
     Dates: start: 2017
  2. SIMVASTATIN. [Concomitant]
     Active Substance: SIMVASTATIN
     Indication: PRODUCT USED FOR UNKNOWN INDICATION
     Dosage: UNK
     Route: 065
  3. LOSARTAN. [Suspect]
     Active Substance: LOSARTAN
     Indication: HYPERTENSION
     Dosage: UNK
     Route: 065
     Dates: start: 2014
  4. BUPRENORPHINE. [Concomitant]
     Active Substance: BUPRENORPHINE
     Indication: ANALGESIC THERAPY
     Dosage: UNK
     Route: 062
  5. CALCIUM CARBONATE. [Interacting]
     Active Substance: CALCIUM CARBONATE
     Indication: DYSPEPSIA
     Dosage: 4500 MILLIGRAM, ONCE A DAY
     Route: 048
  6. PARACETAMOL [Concomitant]
     Active Substance: ACETAMINOPHEN
     Indication: PRODUCT USED FOR UNKNOWN INDICATION
     Dosage: UNK
     Route: 065

REACTIONS (12)
  - Drug interaction [Recovered/Resolved]
  - Renal impairment [Recovered/Resolved]
  - Condition aggravated [Recovered/Resolved]
  - Milk-alkali syndrome [Recovered/Resolved]
  - Vitamin D deficiency [Recovered/Resolved]
  - Incorrect dose administered [Recovered/Resolved]
  - Hypercalcaemia [Recovered/Resolved]
  - Product use in unapproved indication [Recovered/Resolved]
  - Prescription drug used without a prescription [Recovered/Resolved]
  - Intentional overdose [Recovered/Resolved]
  - Nephrolithiasis [Recovered/Resolved]
  - Nephrolithiasis [Unknown]

NARRATIVE: CASE EVENT DATE: 2019
